FAERS Safety Report 8313603-9 (Version None)
Quarter: 2012Q2

REPORT INFORMATION
  Report Type: 
  Country: None (occurrence: None)
  Receive Date: 20120426
  Receipt Date: 20120412
  Transmission Date: 20120825
  Serious: Yes (Hospitalization)
  Sender: FDA-Public Use
  Company Number: US-MYLANLABS-2012S1007884

PATIENT
  Age: 39 Year
  Sex: Female

DRUGS (14)
  1. QUETIAPINE [Suspect]
     Route: 065
  2. METFORMIN HCL [Concomitant]
     Route: 065
  3. LEVOTHYROXINE SODIUM [Concomitant]
     Route: 065
  4. PROMETHAZINE [Suspect]
     Route: 065
  5. PROCHLORPERAZINE [Suspect]
     Route: 065
  6. METHADONE HCL [Suspect]
     Indication: PELVIC PAIN
     Route: 065
  7. COTRIM [Concomitant]
     Route: 065
  8. CITALOPRAM HYDROBROMIDE [Suspect]
     Route: 065
  9. GABAPENTIN [Concomitant]
     Route: 065
  10. BUSPIRONE HCL [Suspect]
     Route: 065
  11. AMITRIPTYLINE HCL [Suspect]
     Route: 065
  12. ZONISAMIDE [Concomitant]
     Route: 065
  13. PRAVASTATIN [Concomitant]
     Route: 065
  14. MECLIZINE HYDROCHLORIDE [Concomitant]
     Route: 065

REACTIONS (1)
  - SEROTONIN SYNDROME [None]
